FAERS Safety Report 4605256-8 (Version None)
Quarter: 2005Q1

REPORT INFORMATION
  Report Type: 
  Country: None (occurrence: None)
  Receive Date: 20050310
  Receipt Date: 20040303
  Transmission Date: 20050727
  Serious: No
  Sender: FDA-Public Use
  Company Number: US-BRISTOL-MYERS SQUIBB COMPANY-12526620

PATIENT
  Age: 56 Year
  Sex: Male

DRUGS (3)
  1. MONISTAT [Suspect]
     Dosage: CONTACT WITH DRUG THROUGH INTERCOURSE ON UNREPORTED DATE.  PRODUCT USED ON 28-FEB-04.
  2. QUININE SULFATE [Concomitant]
  3. CLONAZEPAM [Concomitant]

REACTIONS (1)
  - HYPOAESTHESIA [None]
